FAERS Safety Report 6738806-6 (Version None)
Quarter: 2010Q2

REPORT INFORMATION
  Report Type: 
  Country: None (occurrence: None)
  Receive Date: 20100524
  Receipt Date: 20100420
  Transmission Date: 20101027
  Serious: Yes (Other)
  Sender: FDA-Public Use
  Company Number: US-BAXTER-2009BH017531

PATIENT
  Age: 61 Year
  Sex: Male
  Weight: 87 kg

DRUGS (12)
  1. HEPARIN SODIUM INJECTION [Suspect]
     Indication: THROMBOSIS
     Route: 042
     Dates: start: 20071125, end: 20071205
  2. HEPARIN SODIUM INJECTION [Suspect]
     Indication: INFECTION
     Route: 042
     Dates: start: 20071125, end: 20071205
  3. WARFARIN SODIUM [Concomitant]
     Indication: COAGULOPATHY
     Route: 065
  4. CELEXA [Concomitant]
     Indication: DRUG USE FOR UNKNOWN INDICATION
     Route: 065
  5. AMIODARONE [Concomitant]
     Indication: DRUG USE FOR UNKNOWN INDICATION
     Route: 065
  6. PROTONIX [Concomitant]
     Indication: DRUG USE FOR UNKNOWN INDICATION
     Route: 065
  7. ASPIRIN [Concomitant]
     Indication: DRUG USE FOR UNKNOWN INDICATION
     Route: 065
  8. TYLENOL [Concomitant]
     Indication: PAIN
     Route: 065
  9. RESTORIL [Concomitant]
     Indication: SLEEP DISORDER
     Route: 065
  10. OXYCODONE [Concomitant]
     Indication: DRUG USE FOR UNKNOWN INDICATION
     Route: 065
  11. HYDROCODONE [Concomitant]
     Indication: DRUG USE FOR UNKNOWN INDICATION
     Route: 065
  12. CHANTIX [Concomitant]
     Indication: DRUG USE FOR UNKNOWN INDICATION
     Route: 065

REACTIONS (4)
  - DRUG HYPERSENSITIVITY [None]
  - HEPARIN-INDUCED THROMBOCYTOPENIA [None]
  - PULMONARY EMBOLISM [None]
  - RENAL FAILURE [None]
